FAERS Safety Report 8354545 (Version 9)
Quarter: 2014Q2

REPORT INFORMATION
  Report Type: Spontaneous
  Country: JP (occurrence: JP)
  Receive Date: 20120125
  Receipt Date: 20140411
  Transmission Date: 20141212
  Serious: Yes (Death, Life-Threatening, Hospitalization, Other)
  Sender: FDA-Public Use
  Company Number: JP-PFIZER INC-2012017491

PATIENT
  Age: 38 Year
  Sex: Male

DRUGS (2)
  1. ZITHROMAC [Suspect]
     Indication: PHARYNGITIS
     Dosage: 500 MG, 1X/DAY
     Route: 048
     Dates: start: 20120119, end: 20120120
  2. PL GRAN. [Suspect]
     Indication: PHARYNGITIS
     Dosage: 1 G, 3X/DAY
     Route: 048
     Dates: start: 20120119, end: 20120120

REACTIONS (8)
  - Rhabdomyolysis [Fatal]
  - Thrombotic thrombocytopenic purpura [Fatal]
  - Blood pressure decreased [Fatal]
  - Angioedema [Fatal]
  - Multi-organ failure [Fatal]
  - Renal failure acute [Fatal]
  - Anaphylactic shock [Unknown]
  - Angioedema [Not Recovered/Not Resolved]
